FAERS Safety Report 7719474-3 (Version None)
Quarter: 2011Q3

REPORT INFORMATION
  Report Type: 
  Country: None (occurrence: None)
  Receive Date: 20110830
  Receipt Date: 20110818
  Transmission Date: 20111222
  Serious: No
  Sender: FDA-Public Use
  Company Number: US-ASTRAZENECA-2011SE33896

PATIENT
  Age: 49 Year
  Sex: Female

DRUGS (1)
  1. SEROQUEL XR [Suspect]
     Route: 048

REACTIONS (6)
  - PSYCHOTIC DISORDER [None]
  - BIPOLAR DISORDER [None]
  - SCHIZOPHRENIA [None]
  - POST-TRAUMATIC STRESS DISORDER [None]
  - ASTHMA [None]
  - PANIC ATTACK [None]
